FAERS Safety Report 10177229 (Version 1)
Quarter: 2014Q2

REPORT INFORMATION
  Report Type: Spontaneous
  Country: US (occurrence: US)
  Receive Date: 20140516
  Receipt Date: 20140516
  Transmission Date: 20141212
  Serious: No
  Sender: FDA-Public Use
  Company Number: US-BAYER-2014-072742

PATIENT
  Age: 60 Year
  Sex: Female
  Weight: 94.33 kg

DRUGS (5)
  1. ALEVE TABLET [Suspect]
     Indication: ARTHRITIS
     Dosage: 1 DF, PRN
     Route: 048
  2. BYETTA [Concomitant]
  3. LEVEMIR [Concomitant]
  4. METFORMIN [Concomitant]
  5. ATORVASTATIN [Concomitant]

REACTIONS (1)
  - Drug ineffective [None]
